FAERS Safety Report 12178639 (Version 1)
Quarter: 2016Q1

REPORT INFORMATION
  Report Type: Spontaneous
  Country: US (occurrence: US)
  Receive Date: 20160315
  Receipt Date: 20160315
  Transmission Date: 20160526
  Serious: Yes (Hospitalization)
  Sender: FDA-Public Use
  Company Number: US-BEH-2016059847

PATIENT
  Sex: Female
  Weight: 78 kg

DRUGS (10)
  1. ZEMAIRA [Suspect]
     Active Substance: .ALPHA.1-PROTEINASE INHIBITOR HUMAN
     Indication: OBSTRUCTIVE AIRWAYS DISORDER
     Dosage: 984 MG VIALS
     Route: 042
  2. LIDOCAINE. [Concomitant]
     Active Substance: LIDOCAINE
  3. AMARYL [Concomitant]
     Active Substance: GLIMEPIRIDE
  4. NOVOLOG [Concomitant]
     Active Substance: INSULIN ASPART
  5. SODIUM CHLORIDE. [Concomitant]
     Active Substance: SODIUM CHLORIDE
  6. EPIPEN [Concomitant]
     Active Substance: EPINEPHRINE
  7. CLONIDINE. [Concomitant]
     Active Substance: CLONIDINE
  8. ZEMAIRA [Suspect]
     Active Substance: .ALPHA.1-PROTEINASE INHIBITOR HUMAN
     Indication: OBSTRUCTIVE AIRWAYS DISORDER
     Dosage: 984 MG VIALS
     Route: 042
  9. DIPHENHYDRAMINE. [Concomitant]
     Active Substance: DIPHENHYDRAMINE
  10. OXYGEN. [Concomitant]
     Active Substance: OXYGEN

REACTIONS (2)
  - Hypertension [Unknown]
  - Atrial fibrillation [Unknown]
